FAERS Safety Report 16323583 (Version 1)
Quarter: 2019Q2

REPORT INFORMATION
  Report Type: Spontaneous
  Country: AU (occurrence: AU)
  Receive Date: 20190517
  Receipt Date: 20190517
  Transmission Date: 20190711
  Serious: No
  Sender: FDA-Public Use
  Company Number: AU-LUPIN PHARMACEUTICALS INC.-2018-06905

PATIENT
  Age: 70 Year
  Sex: Female

DRUGS (3)
  1. TAPENTADOL [Concomitant]
     Active Substance: TAPENTADOL
     Indication: MIGRAINE
     Dosage: 50 MG, UNK
     Route: 065
  2. QUETIAPINE. [Suspect]
     Active Substance: QUETIAPINE
     Indication: HALLUCINATION, VISUAL
     Dosage: 100 MG, QD, NIGHTLY
     Route: 065
  3. HALOPERIDOL. [Suspect]
     Active Substance: HALOPERIDOL
     Indication: HALLUCINATION, VISUAL
     Dosage: 0.5 MG, TID,  8 HOUR
     Route: 065

REACTIONS (3)
  - Treatment noncompliance [Unknown]
  - Sedation [Unknown]
  - Drug ineffective [Unknown]
